FAERS Safety Report 24907768 (Version 2)
Quarter: 2025Q3

REPORT INFORMATION
  Report Type: Spontaneous
  Country: US (occurrence: US)
  Receive Date: 20250131
  Receipt Date: 20250818
  Transmission Date: 20251020
  Serious: No
  Sender: ROCHE
  Company Number: US-ROCHE-10000193279

PATIENT
  Age: 36 Year
  Sex: Female

DRUGS (4)
  1. CELLCEPT [Suspect]
     Active Substance: MYCOPHENOLATE MOFETIL
     Indication: Lupus nephritis
     Dosage: MORE DOSAGE INFORMATION IS 3 PILLS TWICE A DAY
     Route: 048
     Dates: start: 2023
  2. LUPKYNIS [Concomitant]
     Active Substance: VOCLOSPORIN
     Indication: Lupus nephritis
     Route: 048
     Dates: start: 2024
  3. PLAQUENIL [Concomitant]
     Active Substance: HYDROXYCHLOROQUINE SULFATE
     Dates: start: 2018
  4. PREDNISONE [Concomitant]
     Active Substance: PREDNISONE
     Dates: start: 2018

REACTIONS (2)
  - Off label use [Unknown]
  - No adverse event [Unknown]
